FAERS Safety Report 5156846-8 (Version None)
Quarter: 2006Q4

REPORT INFORMATION
  Report Type: 
  Country: None (occurrence: None)
  Receive Date: 20061115
  Receipt Date: 20061102
  Transmission Date: 20070319
  Serious: Yes (Hospitalization)
  Sender: FDA-Public Use
  Company Number: 2006124947

PATIENT
  Age: 64 Year
  Sex: Female

DRUGS (17)
  1. SUTENT [Suspect]
     Indication: GASTROINTESTINAL STROMAL TUMOUR
     Dosage: 50 MG, 1 IN 1 D, ORAL
     Route: 048
     Dates: start: 20060614
  2. MEDROXYPROGESTERONE ACETATE [Concomitant]
  3. FUROSEMIDE [Concomitant]
  4. MULTIVITAMINS WITH MINERALS (MULTIVITAMINS WITH MINERALS) [Concomitant]
  5. GASCON (DIMETICONE) [Concomitant]
  6. METOCLOPRAMIDE [Concomitant]
  7. DOMPERIDONE (DOMPERIDONE) [Concomitant]
  8. SPIRONOLACTONE [Concomitant]
  9. SLOW-K (POTASSIM CHLORIDE) [Concomitant]
  10. ACETAMINOPHEN [Concomitant]
  11. LASIX [Concomitant]
  12. LORAZEPAM [Concomitant]
  13. DICLOFENAC SODIUM [Concomitant]
  14. BUPRENORPHINE HCL [Concomitant]
  15. PHYTONADIONE [Concomitant]
  16. MAGNESIUM OXIDE (MAGNESIUM OXIDE) [Concomitant]
  17. SENNOSIDE A (SENNOSIDE A) [Concomitant]

REACTIONS (6)
  - AMMONIA INCREASED [None]
  - BILIARY TRACT DISORDER [None]
  - BLOOD BILIRUBIN INCREASED [None]
  - HEPATIC NEOPLASM [None]
  - JAUNDICE [None]
  - NEOPLASM [None]
